FAERS Safety Report 11677137 (Version 1)
Quarter: 2015Q4

REPORT INFORMATION
  Report Type: Spontaneous
  Country: US (occurrence: US)
  Receive Date: 20151027
  Receipt Date: 20151027
  Transmission Date: 20160304
  Serious: No
  Sender: FDA-Public Use
  Company Number: US-ELI_LILLY_AND_COMPANY-US201009002543

PATIENT
  Age: 69 Year
  Sex: Female

DRUGS (1)
  1. FORTEO [Suspect]
     Active Substance: TERIPARATIDE

REACTIONS (7)
  - Limb discomfort [Unknown]
  - Pain in extremity [Recovering/Resolving]
  - Gait disturbance [Unknown]
  - Sinusitis [Recovering/Resolving]
  - Memory impairment [Unknown]
  - Swelling [Recovering/Resolving]
  - Arthralgia [Recovering/Resolving]
